FAERS Safety Report 5495672-7 (Version None)
Quarter: 2007Q4

REPORT INFORMATION
  Report Type: 
  Country: None (occurrence: None)
  Receive Date: 20071015
  Receipt Date: 20070521
  Transmission Date: 20080405
  Serious: Yes (Other)
  Sender: FDA-Public Use
  Company Number: S07-USA-02166-01

PATIENT
  Age: 22 Year
  Sex: Male

DRUGS (2)
  1. LEXAPRO [Suspect]
     Indication: DEPRESSION
     Dosage: 10 MG QD PO
     Route: 048
     Dates: start: 20070501, end: 20070519
  2. LEXAPRO [Suspect]
     Indication: DEPRESSION
     Dates: start: 20070520, end: 20070520

REACTIONS (2)
  - INTENTIONAL OVERDOSE [None]
  - VOMITING [None]
